FAERS Safety Report 23995513 (Version 1)
Quarter: 2024Q2

REPORT INFORMATION
  Report Type: Spontaneous
  Country: US (occurrence: None)
  Receive Date: 20240611
  Receipt Date: 20240611
  Transmission Date: 20240716
  Serious: Yes (Other)
  Sender: FDA-Public Use
  Company Number: None

PATIENT
  Age: 70 Year
  Sex: Female
  Weight: 75.15 kg

DRUGS (4)
  1. BENZALKONIUM CHLORIDE [Suspect]
     Active Substance: BENZALKONIUM\BENZALKONIUM CHLORIDE
     Indication: Pupil dilation procedure
     Route: 047
     Dates: start: 20240123, end: 20240123
  2. COSMETICS [Suspect]
     Active Substance: COSMETICS
  3. WELLBUTRIN [Concomitant]
     Active Substance: BUPROPION HYDROCHLORIDE
  4. BIOTIN [Concomitant]
     Active Substance: BIOTIN

REACTIONS (3)
  - Alopecia [None]
  - Eye swelling [None]
  - Lacrimation decreased [None]

NARRATIVE: CASE EVENT DATE: 20240123
